FAERS Safety Report 5707007-2 (Version None)
Quarter: 2008Q2

REPORT INFORMATION
  Report Type: 
  Country: None (occurrence: None)
  Receive Date: 20080416
  Receipt Date: 20080411
  Transmission Date: 20081010
  Serious: Yes (Other)
  Sender: FDA-Public Use
  Company Number: A0676046A

PATIENT
  Age: 6 Year
  Sex: Female
  Weight: 22.7 kg

DRUGS (2)
  1. PAXIL [Suspect]
     Dosage: 10MG PER DAY
     Dates: start: 19990101
  2. NO CONCURRENT MEDICATION [Concomitant]

REACTIONS (2)
  - ANGINA PECTORIS [None]
  - DRUG EXPOSURE DURING PREGNANCY [None]
